FAERS Safety Report 6829757-7 (Version None)
Quarter: 2010Q3

REPORT INFORMATION
  Report Type: 
  Country: None (occurrence: None)
  Receive Date: 20100709
  Receipt Date: 20080104
  Transmission Date: 20110219
  Serious: No
  Sender: FDA-Public Use
  Company Number: US-PFIZER INC-2007006546

PATIENT
  Sex: Female
  Weight: 58.51 kg

DRUGS (4)
  1. CHANTIX [Suspect]
     Indication: EX-TOBACCO USER
     Dates: start: 20060101, end: 20070101
  2. SPIRIVA [Concomitant]
  3. ALL OTHER THERAPEUTIC PRODUCTS [Concomitant]
  4. XOPENEX [Concomitant]

REACTIONS (8)
  - ANXIETY [None]
  - APHASIA [None]
  - DEPRESSION [None]
  - DYSPNOEA [None]
  - IMMOBILE [None]
  - NAUSEA [None]
  - SOMNOLENCE [None]
  - WEIGHT INCREASED [None]
